FAERS Safety Report 4784048-3 (Version None)
Quarter: 2005Q3

REPORT INFORMATION
  Report Type: 
  Country: None (occurrence: None)
  Receive Date: 20050930
  Receipt Date: 20050926
  Transmission Date: 20060218
  Serious: Yes (Other)
  Sender: FDA-Public Use
  Company Number: 2005UW14353

PATIENT
  Age: 79 Year
  Sex: Male

DRUGS (7)
  1. ZESTRIL [Suspect]
     Route: 048
  2. LIPITOR [Suspect]
     Route: 048
  3. COMBIGAN [Concomitant]
     Route: 047
  4. GLUCOPHAGE [Concomitant]
     Route: 048
  5. HYDROCHLOROTHIAZIDE [Concomitant]
     Route: 048
  6. PILOCARPINE [Concomitant]
     Route: 047
  7. XALATAN [Concomitant]
     Route: 047

REACTIONS (3)
  - COUGH [None]
  - INTRAOCULAR PRESSURE INCREASED [None]
  - MUSCULOSKELETAL STIFFNESS [None]
